FAERS Safety Report 18331755 (Version 2)
Quarter: 2020Q4

REPORT INFORMATION
  Report Type: Report from Study
  Country: GB (occurrence: GB)
  Receive Date: 20200930
  Receipt Date: 20201013
  Transmission Date: 20210113
  Serious: Yes (Other)
  Sender: FDA-Public Use
  Company Number: GB-JNJFOC-20200940837

PATIENT
  Age: 8 Decade
  Sex: Male

DRUGS (6)
  1. ASPIRIN                            /00002701/ [Concomitant]
     Active Substance: ASPIRIN
  2. CALCIUM                            /00060701/ [Concomitant]
     Active Substance: CALCIUM
  3. STELARA [Suspect]
     Active Substance: USTEKINUMAB
     Indication: CROHN^S DISEASE
     Route: 058
     Dates: start: 20200809
  4. STELARA [Suspect]
     Active Substance: USTEKINUMAB
  5. OMEPRAZOLE. [Concomitant]
     Active Substance: OMEPRAZOLE
  6. STATIN                             /00036501/ [Concomitant]
     Active Substance: NYSTATIN

REACTIONS (1)
  - Gallbladder disorder [Unknown]

NARRATIVE: CASE EVENT DATE: 2020
